FAERS Safety Report 4939083-9 (Version None)
Quarter: 2006Q1

REPORT INFORMATION
  Report Type: 
  Country: None (occurrence: None)
  Receive Date: 20060306
  Receipt Date: 20060222
  Transmission Date: 20060701
  Serious: Yes (Hospitalization)
  Sender: FDA-Public Use
  Company Number: 2006018096

PATIENT
  Age: 82 Year
  Sex: Female
  Weight: 57.6068 kg

DRUGS (9)
  1. ROGAINE [Suspect]
     Indication: ALOPECIA
     Dosage: 1ML 10-12 HOURS APART, 2 TIMES A DAY, TOPICAL
     Route: 061
  2. PRAVASTATIN [Concomitant]
  3. DILTIAZEM [Concomitant]
  4. LISINOPRIL [Concomitant]
  5. LEVOTHYROXINE SODIUM [Concomitant]
  6. CENTRUM (MINERALS NOS, VITAMINS NOS) [Concomitant]
  7. CALCIUM (CALCIUM) [Concomitant]
  8. ASCORBIC ACID [Concomitant]
  9. TOCOPHEROL (TOCOPHEROL) [Concomitant]

REACTIONS (4)
  - ALOPECIA [None]
  - CONDITION AGGRAVATED [None]
  - DIVERTICULITIS [None]
  - HAEMORRHAGE [None]
